FAERS Safety Report 7496849-1 (Version None)
Quarter: 2011Q2

REPORT INFORMATION
  Report Type: 
  Country: None (occurrence: None)
  Receive Date: 20110523
  Receipt Date: 20110516
  Transmission Date: 20111010
  Serious: Yes (Other)
  Sender: FDA-Public Use
  Company Number: US-SANOFI-AVENTIS-2011SA030354

PATIENT
  Sex: Female

DRUGS (4)
  1. WARFARIN SODIUM [Suspect]
     Route: 065
     Dates: end: 20090101
  2. ASPIRIN [Suspect]
     Route: 048
     Dates: start: 20060801, end: 20110412
  3. ASPIRIN [Suspect]
     Route: 065
     Dates: start: 20110415
  4. PLAVIX [Suspect]
     Route: 048
     Dates: start: 20060801, end: 20110412

REACTIONS (3)
  - DIZZINESS [None]
  - HAEMATOCHEZIA [None]
  - ATRIAL FIBRILLATION [None]
